FAERS Safety Report 7801834-3 (Version None)
Quarter: 2011Q4

REPORT INFORMATION
  Report Type: 
  Country: None (occurrence: None)
  Receive Date: 20111007
  Receipt Date: 20111005
  Transmission Date: 20120403
  Serious: Yes (Other)
  Sender: FDA-Public Use
  Company Number: DE-PFIZER INC-2011229888

PATIENT
  Age: 67 Year
  Sex: Female
  Weight: 70 kg

DRUGS (1)
  1. CYTOTEC [Suspect]
     Indication: CERVIX DISORDER
     Dosage: 2 DF, SINGLE
     Route: 067
     Dates: start: 20110927

REACTIONS (7)
  - ASTHENIA [None]
  - CHILLS [None]
  - OFF LABEL USE [None]
  - PYREXIA [None]
  - PERIPHERAL VASCULAR DISORDER [None]
  - ABDOMINAL PAIN LOWER [None]
  - ABASIA [None]
